FAERS Safety Report 15210847 (Version 1)
Quarter: 2018Q3

REPORT INFORMATION
  Report Type: Spontaneous
  Country: US (occurrence: US)
  Receive Date: 20180629
  Receipt Date: 20180629
  Transmission Date: 20181010
  Serious: No
  Sender: FDA-Public Use
  Company Number: None

PATIENT
  Age: 25 Year
  Sex: Female
  Weight: 47.25 kg

DRUGS (3)
  1. EQUATE EYE ITCH RELIEF [Concomitant]
     Active Substance: KETOTIFEN FUMARATE
  2. PREDNISOLONE ACETATE OPHTHALMIC SUSPENSION USP, 1% [Suspect]
     Active Substance: PREDNISOLONE ACETATE
     Indication: EYE SWELLING
     Dosage: ?          QUANTITY:1 DROP(S);?
     Route: 047
  3. PREDNISOLONE ACETATE OPHTHALMIC SUSPENSION USP 1% [Concomitant]

REACTIONS (2)
  - Product taste abnormal [None]
  - Product quality issue [None]

NARRATIVE: CASE EVENT DATE: 20180628
